FAERS Safety Report 17553616 (Version 1)
Quarter: 2020Q1

REPORT INFORMATION
  Report Type: Spontaneous
  Country: PL (occurrence: PL)
  Receive Date: 20200317
  Receipt Date: 20200317
  Transmission Date: 20200409
  Serious: Yes (Other)
  Sender: FDA-Public Use
  Company Number: PL-US-PROVELL PHARMACEUTICALS LLC-9150913

PATIENT
  Sex: Female

DRUGS (2)
  1. EUTHYROX [Suspect]
     Active Substance: LEVOTHYROXINE SODIUM
     Dosage: 75 UG ON WEEKDAYS AND AND 50 UG ON WEEKENDS
  2. EUTHYROX [Suspect]
     Active Substance: LEVOTHYROXINE SODIUM
     Indication: HYPOTHYROIDISM
     Dates: start: 201909

REACTIONS (5)
  - Swelling [Not Recovered/Not Resolved]
  - Abdominal distension [Unknown]
  - Feeling abnormal [Unknown]
  - Autoimmune thyroiditis [Unknown]
  - Weight loss poor [Unknown]
